FAERS Safety Report 9353178 (Version 1)
Quarter: 2013Q2

REPORT INFORMATION
  Report Type: Spontaneous
  Country: US (occurrence: None)
  Receive Date: 20130617
  Receipt Date: 20130617
  Transmission Date: 20140414
  Serious: No
  Sender: FDA-Public Use
  Company Number: None

PATIENT
  Sex: 0

DRUGS (2)
  1. ABILIFY [Suspect]
     Indication: BIPOLAR I DISORDER
     Dosage: EVERY AM
     Route: 048
     Dates: start: 2005, end: 2013
  2. ABILIFY [Suspect]
     Indication: BIPOLAR DISORDER
     Dosage: EVERY AM
     Route: 048
     Dates: start: 2005, end: 2013

REACTIONS (1)
  - Diabetes mellitus [None]
